FAERS Safety Report 23463990 (Version 3)
Quarter: 2024Q1

REPORT INFORMATION
  Report Type: Report from Study
  Country: US (occurrence: US)
  Receive Date: 20240201
  Receipt Date: 20240328
  Transmission Date: 20240410
  Serious: Yes (Other)
  Sender: FDA-Public Use
  Company Number: US-TAKEDA-2023TUS107176

PATIENT
  Age: 54 Year
  Sex: Male
  Weight: 105 kg

DRUGS (1)
  1. VEDOLIZUMAB [Suspect]
     Active Substance: VEDOLIZUMAB
     Indication: Colitis ulcerative
     Dosage: 300 MILLIGRAM
     Route: 042
     Dates: start: 20231102

REACTIONS (6)
  - Haematochezia [Not Recovered/Not Resolved]
  - Haematospermia [Unknown]
  - Blood iron decreased [Not Recovered/Not Resolved]
  - Defaecation urgency [Unknown]
  - Upper respiratory tract infection [Recovering/Resolving]
  - Cough [Recovering/Resolving]

NARRATIVE: CASE EVENT DATE: 20231102
